FAERS Safety Report 23220342 (Version 3)
Quarter: 2023Q4

REPORT INFORMATION
  Report Type: Spontaneous
  Country: KZ (occurrence: KZ)
  Receive Date: 20231123
  Receipt Date: 20231220
  Transmission Date: 20240110
  Serious: Yes (Other)
  Sender: FDA-Public Use
  Company Number: KZ-HETERO-HET2023KZ03290

PATIENT
  Sex: Male
  Weight: 58 kg

DRUGS (1)
  1. EFAVIRENZ\EMTRICITABINE\TENOFOVIR DISOPROXIL FUMARATE [Suspect]
     Active Substance: EFAVIRENZ\EMTRICITABINE\TENOFOVIR DISOPROXIL FUMARATE
     Indication: HIV infection WHO clinical stage II
     Dosage: 1 DOSAGE FORM, QD
     Route: 048
     Dates: start: 20220707, end: 20230904

REACTIONS (2)
  - Poisoning [Recovering/Resolving]
  - Dizziness [Recovering/Resolving]
